FAERS Safety Report 6387665-2 (Version None)
Quarter: 2009Q4

REPORT INFORMATION
  Report Type: 
  Country: None (occurrence: None)
  Receive Date: 20091005
  Receipt Date: 20090924
  Transmission Date: 20100525
  Serious: Yes (Other)
  Sender: FDA-Public Use
  Company Number: PHHY2009MX41371

PATIENT
  Sex: Female

DRUGS (3)
  1. TEGRETOL [Suspect]
     Indication: EPILEPSY
     Dosage: 1.5 DF/DAY
     Route: 048
     Dates: start: 20030601
  2. SEROQUEL [Concomitant]
     Indication: BIPOLAR DISORDER
  3. RIVOTRIL [Concomitant]
     Indication: INSOMNIA

REACTIONS (3)
  - CRYING [None]
  - DEPRESSION [None]
  - INSOMNIA [None]
